FAERS Safety Report 7617431-9 (Version None)
Quarter: 2011Q3

REPORT INFORMATION
  Report Type: 
  Country: None (occurrence: None)
  Receive Date: 20110718
  Receipt Date: 20110712
  Transmission Date: 20111222
  Serious: No
  Sender: FDA-Public Use
  Company Number: US-PFIZER INC-2011157560

PATIENT
  Sex: Female
  Weight: 71.202 kg

DRUGS (2)
  1. MELATONIN [Concomitant]
     Dosage: UNK
  2. ZOLOFT [Suspect]
     Indication: DEPRESSION
     Dosage: UNK
     Route: 048
     Dates: start: 20110711

REACTIONS (1)
  - INSOMNIA [None]
